FAERS Safety Report 12543106 (Version 1)
Quarter: 2016Q3

REPORT INFORMATION
  Report Type: Spontaneous
  Country: US (occurrence: US)
  Receive Date: 20160711
  Receipt Date: 20160711
  Transmission Date: 20161109
  Serious: No
  Sender: FDA-Public Use
  Company Number: US-009507513-1606USA014055

PATIENT
  Age: 24 Year
  Sex: Female
  Weight: 61.22 kg

DRUGS (1)
  1. NEXPLANON [Suspect]
     Active Substance: ETONOGESTREL
     Indication: CONTRACEPTION
     Dosage: EVERY 3 YEARS/IN THE LEFT ARM
     Route: 059

REACTIONS (5)
  - Increased appetite [Unknown]
  - Mood swings [Unknown]
  - Amenorrhoea [Not Recovered/Not Resolved]
  - Acne [Unknown]
  - Weight increased [Unknown]
